FAERS Safety Report 23960058 (Version 1)
Quarter: 2024Q2

REPORT INFORMATION
  Report Type: Spontaneous
  Country: DE (occurrence: DE)
  Receive Date: 20240611
  Receipt Date: 20240611
  Transmission Date: 20240716
  Serious: Yes (Other)
  Sender: FDA-Public Use
  Company Number: None

PATIENT
  Age: 50 Year
  Sex: Female
  Weight: 60 kg

DRUGS (1)
  1. AJOVY [Suspect]
     Active Substance: FREMANEZUMAB-VFRM
     Indication: Migraine
     Dosage: TIME INTERVAL: 0.125 YEARS
     Route: 058
     Dates: start: 2019, end: 20240507

REACTIONS (1)
  - Ophthalmic herpes zoster [Recovering/Resolving]

NARRATIVE: CASE EVENT DATE: 20240513
